FAERS Safety Report 15269265 (Version 1)
Quarter: 2018Q3

REPORT INFORMATION
  Report Type: Spontaneous
  Country: US (occurrence: US)
  Receive Date: 20180813
  Receipt Date: 20180813
  Transmission Date: 20181010
  Serious: No
  Sender: FDA-Public Use
  Company Number: US-ASTRAZENECA-2018SE92692

PATIENT
  Sex: Female

DRUGS (1)
  1. SYMBICORT [Suspect]
     Active Substance: BUDESONIDE\FORMOTEROL FUMARATE DIHYDRATE
     Indication: ASTHMA
     Dosage: PRESCRIBED 160/4.5 MCG, TWO INHALATIONS TWICE A DAY BUT THE CONSUMER TAKES THE MEDICATION ONLY ON...
     Route: 055

REACTIONS (7)
  - Asthma [Recovered/Resolved]
  - Intentional product misuse [Unknown]
  - Intentional device misuse [Unknown]
  - Wrong technique in product usage process [Unknown]
  - Circumstance or information capable of leading to medication error [Unknown]
  - Device issue [Unknown]
  - Incorrect dose administered by device [Unknown]
